FAERS Safety Report 13001511 (Version 1)
Quarter: 2016Q4

REPORT INFORMATION
  Report Type: Spontaneous
  Country: US (occurrence: US)
  Receive Date: 20161205
  Receipt Date: 20161205
  Transmission Date: 20170207
  Serious: Yes (Life-Threatening, Disabling, Other)
  Sender: FDA-Public Use
  Company Number: None

PATIENT
  Age: 46 Year
  Sex: Female
  Weight: 72 kg

DRUGS (12)
  1. LEVOTHYROXINE. [Suspect]
     Active Substance: LEVOTHYROXINE
  2. CYTOMEL [Suspect]
     Active Substance: LIOTHYRONINE SODIUM
  3. LORTAB [Concomitant]
     Active Substance: ACETAMINOPHEN\HYDROCODONE BITARTRATE
  4. PREDNISONE. [Concomitant]
     Active Substance: PREDNISONE
  5. TAB A VITE MULTIVITAMIN [Suspect]
     Active Substance: VITAMINS
  6. FISH OIL [Suspect]
     Active Substance: FISH OIL
  7. XIFAXAN [Suspect]
     Active Substance: RIFAXIMIN
     Indication: CROHN^S DISEASE
     Dosage: ?          QUANTITY:6 TABLET(S);?
     Route: 048
     Dates: start: 20161203, end: 20161205
  8. VIIBRYD [Suspect]
     Active Substance: VILAZODONE HYDROCHLORIDE
  9. VALIUM [Suspect]
     Active Substance: DIAZEPAM
  10. VITAMIN D [Suspect]
     Active Substance: CHOLECALCIFEROL
  11. KLOR-CON POTASSIUM [Concomitant]
  12. TEMAZAPAM [Concomitant]
     Active Substance: TEMAZEPAM

REACTIONS (16)
  - Vomiting [None]
  - Micturition frequency decreased [None]
  - Abdominal pain upper [None]
  - Abdominal pain lower [None]
  - Chest pain [None]
  - Blood potassium decreased [None]
  - Diarrhoea [None]
  - Chills [None]
  - Nausea [None]
  - Migraine [None]
  - Insomnia [None]
  - Mood swings [None]
  - Pyrexia [None]
  - Palpitations [None]
  - Anger [None]
  - Dizziness [None]

NARRATIVE: CASE EVENT DATE: 20161205
